FAERS Safety Report 18499240 (Version 5)
Quarter: 2021Q3

REPORT INFORMATION
  Report Type: Spontaneous
  Country: PT (occurrence: PT)
  Receive Date: 20201113
  Receipt Date: 20210805
  Transmission Date: 20211014
  Serious: Yes (Hospitalization, Disabling, Other)
  Sender: FDA-Public Use
  Company Number: PT-AUROBINDO-AUR-APL-2020-052957

PATIENT
  Age: 33 Year
  Sex: Female

DRUGS (5)
  1. DESOGESTREL FILM COATED TABLETS [Suspect]
     Active Substance: DESOGESTREL
     Indication: ORAL CONTRACEPTION
  2. CEFUROXIME. [Concomitant]
     Active Substance: CEFUROXIME
     Indication: URINARY TRACT INFECTION
     Dosage: 1 DOSAGE FORM, TWO TIMES A DAY
     Route: 065
  3. AMOXICILLIN+CLAVULANIC ACID [Suspect]
     Active Substance: AMOXICILLIN\CLAVULANIC ACID
     Indication: URINARY TRACT INFECTION
  4. AMOXICILLIN+CLAVULANIC ACID [Suspect]
     Active Substance: AMOXICILLIN\CLAVULANIC ACID
     Indication: INFECTION
     Dosage: UNK
     Route: 065
  5. DESOGESTREL FILM COATED TABLETS [Suspect]
     Active Substance: DESOGESTREL
     Indication: CONTRACEPTION
     Dosage: UNK
     Route: 048

REACTIONS (11)
  - Nodule [Recovered/Resolved]
  - Erythema nodosum [Recovered/Resolved]
  - Arthralgia [Recovered/Resolved]
  - Pathogen resistance [Unknown]
  - Urinary tract infection [Unknown]
  - Adenosine deaminase increased [Unknown]
  - Skin lesion [Recovered/Resolved]
  - Beta 2 microglobulin abnormal [Unknown]
  - Disability [Recovered/Resolved]
  - Skin mass [Recovered/Resolved]
  - Maternal exposure during breast feeding [Unknown]
